FAERS Safety Report 21653169 (Version 3)
Quarter: 2023Q1

REPORT INFORMATION
  Report Type: Spontaneous
  Country: US (occurrence: US)
  Receive Date: 20221128
  Receipt Date: 20230215
  Transmission Date: 20230418
  Serious: No
  Sender: FDA-Public Use
  Company Number: US-JNJFOC-20221145515

PATIENT
  Age: 58 Year
  Sex: Male
  Weight: 92.616 kg

DRUGS (2)
  1. SPRAVATO [Suspect]
     Active Substance: ESKETAMINE
     Indication: Major depression
     Route: 045
     Dates: start: 202108
  2. SPRAVATO [Suspect]
     Active Substance: ESKETAMINE
     Dates: start: 20221117

REACTIONS (3)
  - Device issue [Unknown]
  - Drug delivery system malfunction [Unknown]
  - Underdose [Unknown]

NARRATIVE: CASE EVENT DATE: 20221117
